FAERS Safety Report 6076867-0 (Version None)
Quarter: 2009Q1

REPORT INFORMATION
  Report Type: 
  Country: None (occurrence: None)
  Receive Date: 20090213
  Receipt Date: 20090205
  Transmission Date: 20090719
  Serious: Yes (Death, Hospitalization)
  Sender: FDA-Public Use
  Company Number: US-JNJFOC-20030801689

PATIENT
  Sex: Male
  Weight: 123 kg

DRUGS (16)
  1. REMICADE [Suspect]
     Indication: RHEUMATOID ARTHRITIS
     Dosage: Q 6-8 WEEKS
     Route: 042
     Dates: start: 20020701
  2. ACCUPRIL [Concomitant]
  3. PREDNISONE [Concomitant]
  4. VIOXX [Concomitant]
  5. METHOTREXATE [Concomitant]
     Dates: end: 20030120
  6. FOLIC ACID [Concomitant]
  7. ASPIRIN [Concomitant]
  8. ZANAFLEX [Concomitant]
  9. PROTONIX [Concomitant]
  10. ACETAMINOPHEN AND CODEINE PHOSPHATE [Concomitant]
  11. PARACETAMOL [Concomitant]
  12. HYDROTALCITE [Concomitant]
  13. PROPACET 100 [Concomitant]
  14. TRAZODONE HCL [Concomitant]
  15. AZITHROMYCIN [Concomitant]
  16. SERTRALINE HYDROCHLORIDE [Concomitant]

REACTIONS (4)
  - HISTOPLASMOSIS [None]
  - RENAL FAILURE [None]
  - SEPSIS [None]
  - SPLENOMEGALY [None]
